FAERS Safety Report 6680667-8 (Version None)
Quarter: 2010Q2

REPORT INFORMATION
  Report Type: 
  Country: None (occurrence: None)
  Receive Date: 20100414
  Receipt Date: 20100401
  Transmission Date: 20101027
  Serious: Yes (Death, Hospitalization, Other)
  Sender: FDA-Public Use
  Company Number: US-PFIZER INC-2010031992

PATIENT
  Sex: Female

DRUGS (1)
  1. CHANTIX [Suspect]
     Indication: SMOKING CESSATION THERAPY
     Dosage: 0.5 MG, 1X/DAY
     Route: 048
     Dates: start: 20071001, end: 20071201

REACTIONS (7)
  - CONVULSION [None]
  - DEATH [None]
  - DIABETES MELLITUS [None]
  - HYPOVENTILATION [None]
  - PARALYSIS [None]
  - RASH [None]
  - SWELLING FACE [None]
